FAERS Safety Report 8833778 (Version 1)
Quarter: 2012Q4

REPORT INFORMATION
  Report Type: Spontaneous
  Country: FR (occurrence: None)
  Receive Date: 20121005
  Receipt Date: 20121005
  Transmission Date: 20130627
  Serious: Yes (Life-Threatening, Hospitalization)
  Sender: FDA-Public Use
  Company Number: 2012P1059887

PATIENT
  Age: 54 Year
  Sex: Male

DRUGS (7)
  1. AMOXICILLIN [Suspect]
     Indication: SORE THROAT
  2. AMOXICILLIN [Suspect]
     Indication: SORE MOUTH
  3. LAMOTRIGINE [Suspect]
  4. PREDNISOLONE [Concomitant]
  5. FENTANYL PATCH [Concomitant]
  6. CLONAZEPAM [Concomitant]
  7. PAROXETINE [Concomitant]

REACTIONS (13)
  - Pharyngitis [None]
  - Pigmentation disorder [None]
  - Oral pain [None]
  - Dry eye [None]
  - Stupor [None]
  - Respiratory failure [None]
  - Hypovolaemic shock [None]
  - Pneumonia [None]
  - Klebsiella test positive [None]
  - Septic shock [None]
  - Multi-organ failure [None]
  - Stevens-Johnson syndrome [None]
  - Toxic epidermal necrolysis [None]
